FAERS Safety Report 25228419 (Version 2)
Quarter: 2025Q2

REPORT INFORMATION
  Report Type: Report from Study
  Country: CA (occurrence: CA)
  Receive Date: 20250423
  Receipt Date: 20250425
  Transmission Date: 20250716
  Serious: Yes (Hospitalization, Other)
  Sender: ABBVIE
  Company Number: CA-ABBVIE-6239611

PATIENT
  Sex: Male

DRUGS (1)
  1. RINVOQ [Suspect]
     Active Substance: UPADACITINIB
     Indication: Crohn^s disease
     Dosage: FORM STRENGTH:15 MILLIGRAM
     Route: 048

REACTIONS (5)
  - Intestinal obstruction [Unknown]
  - Ileal stenosis [Unknown]
  - Intestinal anastomosis [Unknown]
  - Adrenal mass [Unknown]
  - Lung disorder [Unknown]
